FAERS Safety Report 11803689 (Version 1)
Quarter: 2015Q4

REPORT INFORMATION
  Report Type: Spontaneous
  Country: CA (occurrence: CA)
  Receive Date: 20151204
  Receipt Date: 20151204
  Transmission Date: 20160305
  Serious: Yes (Other)
  Sender: FDA-Public Use
  Company Number: CA-CONCORDIA PHARMACEUTICALS INC.-CO-PL-CA-2015-400

PATIENT
  Sex: Female

DRUGS (7)
  1. PLAQUENIL [Suspect]
     Active Substance: HYDROXYCHLOROQUINE SULFATE
     Indication: RHEUMATOID ARTHRITIS
     Route: 065
  2. HUMIRA [Concomitant]
     Active Substance: ADALIMUMAB
  3. ARAVA [Suspect]
     Active Substance: LEFLUNOMIDE
     Indication: RHEUMATOID ARTHRITIS
     Route: 065
  4. METHOTREXATE [Concomitant]
     Active Substance: METHOTREXATE
  5. ENBREL [Concomitant]
     Active Substance: ETANERCEPT
  6. PREDNISONE. [Concomitant]
     Active Substance: PREDNISONE
  7. SULFASALAZINE. [Concomitant]
     Active Substance: SULFASALAZINE

REACTIONS (2)
  - Rheumatoid arthritis [Unknown]
  - Drug ineffective [Unknown]
